FAERS Safety Report 9390322 (Version 2)
Quarter: 2020Q1

REPORT INFORMATION
  Report Type: Spontaneous
  Country: US (occurrence: US)
  Receive Date: 20130709
  Receipt Date: 20200304
  Transmission Date: 20200409
  Serious: No
  Sender: FDA-Public Use
  Company Number: US-009507513-1307USA003275

PATIENT
  Age: 81 Year
  Sex: Male

DRUGS (8)
  1. APOMORPHINE HYDROCHLORIDE [Concomitant]
     Active Substance: APOMORPHINE HYDROCHLORIDE
     Dosage: UPTO 5 TIMES A DAY, PRN
  2. APOMORPHINE HYDROCHLORIDE [Concomitant]
     Active Substance: APOMORPHINE HYDROCHLORIDE
     Dosage: UPTO 5 DOSES A DAY, PRN
  3. CARBIDOPA (+) LEVODOPA [Suspect]
     Active Substance: CARBIDOPA\LEVODOPA
     Indication: PARKINSON^S DISEASE
     Dosage: 2.5 PILLS, Q3H, GIVEN 5 TIMES A DAY
  4. CARBIDOPA (+) LEVODOPA [Suspect]
     Active Substance: CARBIDOPA\LEVODOPA
     Dosage: 2 PILLS, Q2H
  5. RASAGILINE. [Concomitant]
     Active Substance: RASAGILINE
     Dosage: 1 MG, QD
  6. APOMORPHINE HYDROCHLORIDE [Concomitant]
     Active Substance: APOMORPHINE HYDROCHLORIDE
     Dosage: UP  TO FIVE TIMES  A DAY
  7. CARBIDOPA (+) LEVODOPA [Suspect]
     Active Substance: CARBIDOPA\LEVODOPA
     Dosage: 1.5 TABLETS, Q2H, TOTAL OF FIVE TO SIX DOSES A DAY
  8. CARBIDOPA (+) LEVODOPA [Suspect]
     Active Substance: CARBIDOPA\LEVODOPA
     Dosage: 1.5 PILLS, TID

REACTIONS (3)
  - Intentional overdose [Unknown]
  - Dopamine dysregulation syndrome [Unknown]
  - Product administration error [Unknown]
